FAERS Safety Report 19814329 (Version 1)
Quarter: 2021Q3

REPORT INFORMATION
  Report Type: Spontaneous
  Country: JP (occurrence: JP)
  Receive Date: 20210910
  Receipt Date: 20210910
  Transmission Date: 20211014
  Serious: Yes (Other)
  Sender: FDA-Public Use
  Company Number: JP-HQ SPECIALTY-JP-2021INT000167

PATIENT
  Sex: Female

DRUGS (11)
  1. APREPITANT. [Suspect]
     Active Substance: APREPITANT
     Indication: PROPHYLAXIS OF NAUSEA AND VOMITING
     Dosage: UNK
     Route: 065
  2. PACLITAXEL. [Suspect]
     Active Substance: PACLITAXEL
     Indication: ENDOMETRIAL CANCER RECURRENT
     Dosage: 160 MG/M2(IN 500 ML SALINE, INFUSED OVER 3 H) ON DAY 2, EVERY 21 DAYS FOR 6 CYCLES
     Route: 042
  3. PALONOSETRON. [Suspect]
     Active Substance: PALONOSETRON HYDROCHLORIDE
     Indication: ANTIALLERGIC THERAPY
  4. DOXORUBICIN [Suspect]
     Active Substance: DOXORUBICIN
     Indication: ENDOMETRIAL CANCER RECURRENT
     Dosage: 45 MG/M2(IN 50 ML SALINE, INFUSED OVER 30 MIN) ON DAY 1, EVERY 21 DAYS FOR 6 CYCLES
     Route: 042
  5. ANTIHISTAMINES [Suspect]
     Active Substance: ANTIHISTAMINES NOS
     Indication: ANTIALLERGIC THERAPY
  6. PALONOSETRON. [Suspect]
     Active Substance: PALONOSETRON HYDROCHLORIDE
     Indication: PROPHYLAXIS OF NAUSEA AND VOMITING
     Dosage: UNK
     Route: 065
  7. CISPLATIN. [Suspect]
     Active Substance: CISPLATIN
     Indication: ENDOMETRIAL CANCER RECURRENT
     Dosage: 50 MG/M2, UNK
     Route: 065
  8. ANTIHISTAMINES [Suspect]
     Active Substance: ANTIHISTAMINES NOS
     Indication: PROPHYLAXIS OF NAUSEA AND VOMITING
     Dosage: UNK
     Route: 065
  9. DEXAMETHASONE. [Suspect]
     Active Substance: DEXAMETHASONE
     Indication: ANTIALLERGIC THERAPY
  10. APREPITANT. [Suspect]
     Active Substance: APREPITANT
     Indication: ANTIALLERGIC THERAPY
  11. DEXAMETHASONE. [Suspect]
     Active Substance: DEXAMETHASONE
     Indication: PROPHYLAXIS OF NAUSEA AND VOMITING
     Dosage: UNK
     Route: 065

REACTIONS (1)
  - Ileus [Recovered/Resolved]
